FAERS Safety Report 7726127-4 (Version None)
Quarter: 2011Q3

REPORT INFORMATION
  Report Type: 
  Country: None (occurrence: None)
  Receive Date: 20110902
  Receipt Date: 20110831
  Transmission Date: 20111222
  Serious: Yes (Death, Other)
  Sender: FDA-Public Use
  Company Number: PHHY2011TW77539

PATIENT
  Age: 41 Year
  Sex: Female

DRUGS (4)
  1. VINCRISTINE [Concomitant]
     Indication: T-CELL LYMPHOMA STAGE IV
  2. PREDNISOLONE [Concomitant]
     Indication: T-CELL LYMPHOMA STAGE IV
  3. EPIRUBICIN [Suspect]
     Indication: T-CELL LYMPHOMA STAGE IV
  4. CYCLOPHOSPHAMIDE [Suspect]
     Indication: T-CELL LYMPHOMA STAGE IV

REACTIONS (6)
  - LEUKAEMIA CUTIS [None]
  - DEATH [None]
  - ACUTE MYELOID LEUKAEMIA [None]
  - PAPULE [None]
  - LEUKAEMIC INFILTRATION [None]
  - PLATELET COUNT DECREASED [None]
